FAERS Safety Report 21676422 (Version 1)
Quarter: 2022Q4

REPORT INFORMATION
  Report Type: Spontaneous
  Country: DK (occurrence: DK)
  Receive Date: 20221202
  Receipt Date: 20221202
  Transmission Date: 20230112
  Serious: Yes (Hospitalization)
  Sender: FDA-Public Use
  Company Number: None

PATIENT
  Age: 49 Year
  Sex: Female
  Weight: 75 kg

DRUGS (1)
  1. DEPO-MEDROL [Suspect]
     Active Substance: METHYLPREDNISOLONE ACETATE
     Indication: Tendonitis
     Dosage: 40 MG
     Dates: start: 20221012

REACTIONS (7)
  - Arthralgia [Recovering/Resolving]
  - Anxiety [Recovering/Resolving]
  - Negative thoughts [Recovering/Resolving]
  - Injection site discomfort [Recovering/Resolving]
  - Limb discomfort [Recovering/Resolving]
  - Chest discomfort [Recovering/Resolving]
  - Discomfort [Recovering/Resolving]

NARRATIVE: CASE EVENT DATE: 20221027
